FAERS Safety Report 8915965 (Version 3)
Quarter: 2013Q1

REPORT INFORMATION
  Report Type: Spontaneous
  Country: GB (occurrence: GB)
  Receive Date: 20121119
  Receipt Date: 20130329
  Transmission Date: 20140127
  Serious: Yes (Death, Hospitalization, Other)
  Sender: FDA-Public Use
  Company Number: GB-PFIZER INC-2008094060

PATIENT
  Age: 82 Year
  Sex: Female

DRUGS (10)
  1. MOTRIN [Suspect]
     Indication: INFLUENZA
     Dosage: 1200 MG, QD
     Route: 048
     Dates: start: 20000102
  2. MOTRIN [Suspect]
     Indication: PAIN
  3. CO-PROXAMOL [Concomitant]
     Dosage: 2 TAB. PRN
  4. ALLOPURINOL [Concomitant]
     Dosage: 300 MILLIGRAM, QD
  5. MADOPAR [Concomitant]
     Dosage: 62.5 MILLIGRAM, TID
  6. LACTULOSE [Concomitant]
     Dosage: 10 MILLILITERS, BID
  7. OMEPRAZOLE [Concomitant]
     Dosage: 20 MILLIGRAM, QD
  8. CANDESARTAN [Concomitant]
     Dosage: 4 MILLIGRAM, QD
  9. SPIRONOLACTONE [Concomitant]
     Dosage: 25 MILLIGRAM, QD
  10. GTN [Concomitant]
     Route: 065

REACTIONS (9)
  - Duodenitis [Fatal]
  - Gastritis [Fatal]
  - Circulatory collapse [Fatal]
  - Anaemia [Fatal]
  - Melaena [Fatal]
  - Shock [Fatal]
  - Nausea [Unknown]
  - Vomiting [Unknown]
  - Abdominal pain [Unknown]
